FAERS Safety Report 4903964-2 (Version None)
Quarter: 2006Q1

REPORT INFORMATION
  Report Type: 
  Country: None (occurrence: None)
  Receive Date: 20060208
  Receipt Date: 20050803
  Transmission Date: 20060701
  Serious: No
  Sender: FDA-Public Use
  Company Number: US-GLAXOSMITHKLINE-A0568808A

PATIENT
  Age: 56 Year
  Sex: Female

DRUGS (14)
  1. PAXIL [Suspect]
     Dosage: 30MG PER DAY
     Route: 048
  2. ACCUTANE [Concomitant]
  3. LEVOTHYROXIN [Concomitant]
  4. CELEBREX [Concomitant]
  5. ASCORBIC ACID [Concomitant]
  6. FISH OIL [Concomitant]
  7. DHEA [Concomitant]
  8. DMAE [Concomitant]
  9. CHROMIUM [Concomitant]
  10. CALCIUM GLUCONATE [Concomitant]
  11. MULTI-VITAMIN [Concomitant]
  12. ALPHA LIPOIC ACID [Concomitant]
  13. GLUCOSAMINE CHONDRITIN [Concomitant]
  14. MSN [Concomitant]

REACTIONS (2)
  - AMNESIA [None]
  - POISONING [None]
